FAERS Safety Report 7807137-5 (Version None)
Quarter: 2011Q4

REPORT INFORMATION
  Report Type: 
  Country: None (occurrence: None)
  Receive Date: 20111011
  Receipt Date: 20111004
  Transmission Date: 20120403
  Serious: Yes (Other)
  Sender: FDA-Public Use
  Company Number: PHEH2009US00814

PATIENT
  Sex: Female

DRUGS (8)
  1. ANTICONVULSANTS [Concomitant]
     Dosage: 60 MG, UNK
  2. DIAZEPAM [Concomitant]
  3. FIORICET [Concomitant]
  4. FAMVIR [Suspect]
     Indication: HERPES SIMPLEX
     Dosage: 500 MG, QID
     Dates: start: 20090104
  5. FIORINAL [Concomitant]
  6. NORTICULIN [Concomitant]
     Dosage: 10 MG, QD
  7. AMOXICILLIN [Concomitant]
  8. ANTIBIOTICS [Concomitant]

REACTIONS (12)
  - MENINGITIS [None]
  - COGNITIVE DISORDER [None]
  - PAIN [None]
  - DYSAESTHESIA [None]
  - MALAISE [None]
  - APHASIA [None]
  - ABNORMAL BEHAVIOUR [None]
  - CONVULSION [None]
  - BREAST MASS [None]
  - NERVOUS SYSTEM DISORDER [None]
  - COMPLEX PARTIAL SEIZURES [None]
  - ENCEPHALITIS [None]
